FAERS Safety Report 4700912-5 (Version None)
Quarter: 2005Q2

REPORT INFORMATION
  Report Type: 
  Country: None (occurrence: None)
  Receive Date: 20050113
  Receipt Date: 20050113
  Transmission Date: 20051028
  Serious: No
  Sender: FDA-Public Use
  Company Number: None

PATIENT

DRUGS (2)
  1. COUMADIN [Suspect]
     Indication: PULMONARY HYPERTENSION
     Dosage: 10MG PO Q DAY   } 1YR
  2. COUMADIN [Suspect]
     Indication: PULMONARY HYPERTENSION
     Dosage: 2MG PO Q DAY   } 1YR
     Route: 048

REACTIONS (2)
  - INTERNATIONAL NORMALISED RATIO ABNORMAL [None]
  - THERAPEUTIC RESPONSE UNEXPECTED WITH DRUG SUBSTITUTION [None]
